FAERS Safety Report 23251500 (Version 1)
Quarter: 2023Q4

REPORT INFORMATION
  Report Type: Other
  Country: US (occurrence: US)
  Receive Date: 20231201
  Receipt Date: 20231201
  Transmission Date: 20240110
  Serious: No
  Sender: FDA-Public Use
  Company Number: US-Merck Healthcare KGaA-2023489747

PATIENT
  Age: 16 Year
  Sex: Female

DRUGS (1)
  1. LEVOTHYROXINE SODIUM [Suspect]
     Active Substance: LEVOTHYROXINE SODIUM
     Indication: Blood thyroid stimulating hormone increased

REACTIONS (4)
  - Blood thyroid stimulating hormone increased [Unknown]
  - Palpitations [Unknown]
  - Weight decreased [Unknown]
  - Product prescribing error [Unknown]
